FAERS Safety Report 13234204 (Version 3)
Quarter: 2017Q1

REPORT INFORMATION
  Report Type: Spontaneous
  Country: JP (occurrence: JP)
  Receive Date: 20170215
  Receipt Date: 20170315
  Transmission Date: 20170428
  Serious: Yes (Other)
  Sender: FDA-Public Use
  Company Number: JP-GLAXOSMITHKLINE-JP2017JPN018443

PATIENT
  Age: 9 Year
  Sex: Female
  Weight: 25 kg

DRUGS (4)
  1. VALTREX [Suspect]
     Active Substance: VALACYCLOVIR HYDROCHLORIDE
     Indication: VARICELLA
     Dosage: 625 MG, SINGLE
     Route: 048
     Dates: start: 20170117
  2. GENTACIN OINTMENT [Concomitant]
     Dosage: UNK
  3. TOPALGIC OINTMENT [Concomitant]
     Dosage: UNK
  4. ALLELOCK [Suspect]
     Active Substance: OLOPATADINE HYDROCHLORIDE
     Indication: PRURITUS
     Dosage: 5 MG, QD
     Route: 048
     Dates: start: 20170117, end: 20170118

REACTIONS (2)
  - Loss of consciousness [Recovered/Resolved]
  - Cyanosis [Recovered/Resolved]

NARRATIVE: CASE EVENT DATE: 20170117
